FAERS Safety Report 4307752-X (Version None)
Quarter: 2004Q1

REPORT INFORMATION
  Report Type: 
  Country: None (occurrence: None)
  Receive Date: 20040225
  Receipt Date: 20030220
  Transmission Date: 20041129
  Serious: Yes (Disabling)
  Sender: FDA-Public Use
  Company Number: WAES 0302USA02455

PATIENT
  Age: 66 Year
  Sex: Male
  Weight: 100.6985 kg

DRUGS (4)
  1. ZOCOR [Suspect]
     Indication: LIPIDS INCREASED
     Dosage: 20 MG/DAILY/PO
     Route: 048
     Dates: start: 20010401, end: 20030114
  2. ALTACE [Concomitant]
  3. TOPROL-XL [Concomitant]
  4. ASPIRIN [Concomitant]

REACTIONS (2)
  - DYSPNOEA [None]
  - MYALGIA [None]
